FAERS Safety Report 7063610-1 (Version None)
Quarter: 2010Q4

REPORT INFORMATION
  Report Type: 
  Country: None (occurrence: None)
  Receive Date: 20101026
  Receipt Date: 20100730
  Transmission Date: 20110411
  Serious: No
  Sender: FDA-Public Use
  Company Number: US-ABBOTT-10P-163-0660905-00

PATIENT
  Age: 15 Year
  Sex: Female

DRUGS (3)
  1. LUPRON DEPOT [Suspect]
     Indication: ENDOMETRIOSIS
     Dates: start: 20100701
  2. ADD-BACK MEDICINE [Concomitant]
     Indication: PRODUCT USED FOR UNKNOWN INDICATION
  3. BIRTH CONTROL [Concomitant]
     Indication: HAEMORRHAGE

REACTIONS (5)
  - DIZZINESS [None]
  - HAEMORRHAGE [None]
  - HOT FLUSH [None]
  - PAIN [None]
  - VISION BLURRED [None]
